FAERS Safety Report 4381145-1 (Version None)
Quarter: 2004Q2

REPORT INFORMATION
  Report Type: 
  Country: None (occurrence: None)
  Receive Date: 20040601
  Receipt Date: 20040206
  Transmission Date: 20050107
  Serious: No
  Sender: FDA-Public Use
  Company Number: FABR-10410

PATIENT
  Age: 14 Year
  Sex: Male
  Weight: 44.5 kg

DRUGS (4)
  1. FABRAZYME [Suspect]
     Indication: FABRY'S DISEASE
     Dosage: 1 MG/KG Q2WKS IV
     Route: 042
     Dates: start: 20030918
  2. FABRAZYME [Suspect]
     Indication: FABRY'S DISEASE
     Dosage: 35 MG Q2WKS IV
     Route: 042
     Dates: start: 20030918
  3. BENADRYL [Concomitant]
  4. MOTRIN [Concomitant]

REACTIONS (6)
  - CHEST DISCOMFORT [None]
  - CHILLS [None]
  - FATIGUE [None]
  - MYALGIA [None]
  - PYREXIA [None]
  - WHEEZING [None]
